FAERS Safety Report 22773661 (Version 3)
Quarter: 2023Q4

REPORT INFORMATION
  Report Type: Spontaneous
  Country: JP (occurrence: JP)
  Receive Date: 20230801
  Receipt Date: 20231219
  Transmission Date: 20240110
  Serious: Yes (Death, Hospitalization)
  Sender: FDA-Public Use
  Company Number: JP-CHUGAI-2023027050AA

PATIENT
  Age: 83 Year
  Sex: Male

DRUGS (1)
  1. EVRYSDI [Suspect]
     Active Substance: RISDIPLAM
     Indication: Spinal muscular atrophy
     Route: 048
     Dates: start: 20230606, end: 2023

REACTIONS (3)
  - Coronavirus infection [Fatal]
  - Pneumonia [Fatal]
  - Product dose omission issue [Unknown]

NARRATIVE: CASE EVENT DATE: 20230724
